FAERS Safety Report 14477302 (Version 1)
Quarter: 2018Q1

REPORT INFORMATION
  Report Type: Spontaneous
  Country: US (occurrence: US)
  Receive Date: 20180201
  Receipt Date: 20180201
  Transmission Date: 20180509
  Serious: No
  Sender: FDA-Public Use
  Company Number: US-EXELIXIS-CABO-17010965

PATIENT
  Sex: Male

DRUGS (16)
  1. HYDROCODONE [Concomitant]
     Active Substance: HYDROCODONE
  2. CABOMETYX [Suspect]
     Active Substance: CABOZANTINIB S-MALATE
     Indication: RENAL CANCER
     Dosage: 40 MG, QD
     Route: 048
     Dates: start: 201612
  3. CABOMETYX [Suspect]
     Active Substance: CABOZANTINIB S-MALATE
     Indication: METASTASIS
     Dosage: 60 MG, QD
     Route: 048
     Dates: start: 201702, end: 20171228
  4. CABOMETYX [Suspect]
     Active Substance: CABOZANTINIB S-MALATE
     Indication: METASTASES TO BONE
  5. METOPROLOL SUCCINATE. [Concomitant]
     Active Substance: METOPROLOL SUCCINATE
  6. VITAMIN D3 [Concomitant]
     Active Substance: CHOLECALCIFEROL
  7. FENTANYL. [Concomitant]
     Active Substance: FENTANYL
  8. ONDANSETRON [Concomitant]
     Active Substance: ONDANSETRON
  9. LISINOPRIL. [Concomitant]
     Active Substance: LISINOPRIL
  10. VITAMIN D [Concomitant]
     Active Substance: CHOLECALCIFEROL
  11. OMEGA 3 [Concomitant]
     Active Substance: OMEGA-3 FATTY ACIDS
  12. LENVIMA [Suspect]
     Active Substance: LENVATINIB
  13. FATTY ACIDS NOS [Concomitant]
  14. PROCHLORPERAZINE. [Concomitant]
     Active Substance: PROCHLORPERAZINE
  15. GABAPENTIN. [Concomitant]
     Active Substance: GABAPENTIN
  16. AFINITOR [Suspect]
     Active Substance: EVEROLIMUS

REACTIONS (1)
  - Adverse drug reaction [Unknown]
